FAERS Safety Report 11354280 (Version 1)
Quarter: 2015Q3

REPORT INFORMATION
  Report Type: Spontaneous
  Country: US (occurrence: US)
  Receive Date: 20150807
  Receipt Date: 20150807
  Transmission Date: 20151125
  Serious: No
  Sender: FDA-Public Use
  Company Number: US-JNJFOC-20141105115

PATIENT
  Age: 52 Year
  Sex: Female
  Weight: 52.62 kg

DRUGS (14)
  1. MODAFINIL. [Concomitant]
     Active Substance: MODAFINIL
     Indication: GENERAL SYMPTOM
     Dosage: ONCE A DAY WHEN NEEDED.
     Route: 065
  2. MULTIVITAMINS [Concomitant]
     Active Substance: VITAMINS
     Indication: ROUTINE HEALTH MAINTENANCE
     Dosage: ONCE A DAY FOR 2 YEARS.
     Route: 065
  3. NEURONTIN [Concomitant]
     Active Substance: GABAPENTIN
     Indication: HYPOAESTHESIA
     Dosage: 4 A DAY FOR THREE MONTHS.
     Route: 065
  4. OMEGA 3 [Concomitant]
     Active Substance: OMEGA-3 FATTY ACIDS
     Indication: ROUTINE HEALTH MAINTENANCE
     Dosage: ONCE A DAY FOR 2 YEARS.
     Route: 065
  5. BIOTIN [Concomitant]
     Active Substance: BIOTIN
     Indication: ROUTINE HEALTH MAINTENANCE
     Dosage: ONCE A DAY FOR 2 YEARS.
     Route: 065
  6. B-6 [Concomitant]
     Indication: ROUTINE HEALTH MAINTENANCE
     Dosage: ONCE A DAY FOR 2 YEARS.
     Route: 065
  7. ZINC [Concomitant]
     Active Substance: ZINC\ZINC CHLORIDE
     Indication: ROUTINE HEALTH MAINTENANCE
     Dosage: ONCE A DAY FOR A MONTH.
     Route: 065
  8. VITAMIN D [Concomitant]
     Active Substance: CHOLECALCIFEROL
     Indication: ROUTINE HEALTH MAINTENANCE
     Dosage: ONCE A DAY FPR 1 YEAR
     Route: 065
  9. NEURONTIN [Concomitant]
     Active Substance: GABAPENTIN
     Indication: PARAESTHESIA
     Dosage: 4 A DAY FOR THREE MONTHS.
     Route: 065
  10. VITAMIN B12 [Concomitant]
     Active Substance: CYANOCOBALAMIN
     Indication: ROUTINE HEALTH MAINTENANCE
     Dosage: ONCE A DAY FOR A YEAR.
     Route: 065
  11. IRON [Concomitant]
     Active Substance: IRON
     Indication: ROUTINE HEALTH MAINTENANCE
     Dosage: ONCE A DAY FOR MONTH.
     Route: 065
  12. MENS ROGAINE EXTRA STRENGTH [Suspect]
     Active Substance: MINOXIDIL
     Route: 061
  13. MENS ROGAINE EXTRA STRENGTH [Suspect]
     Active Substance: MINOXIDIL
     Indication: HAIR GROWTH ABNORMAL
     Route: 061
  14. CALCIUM [Concomitant]
     Active Substance: CALCIUM
     Indication: ROUTINE HEALTH MAINTENANCE
     Dosage: TWICE A DAY FOR TWO YEARS.
     Route: 065

REACTIONS (2)
  - Off label use [Unknown]
  - Hair texture abnormal [Recovered/Resolved]
